FAERS Safety Report 11880974 (Version 1)
Quarter: 2015Q4

REPORT INFORMATION
  Report Type: Spontaneous
  Country: JP (occurrence: JP)
  Receive Date: 20151230
  Receipt Date: 20151230
  Transmission Date: 20160305
  Serious: Yes (Death, Hospitalization, Other)
  Sender: FDA-Public Use
  Company Number: JP-CORDEN PHARMA LATINA S.P.A.-JP-2015COR000306

PATIENT
  Age: 70 Year
  Sex: Male

DRUGS (6)
  1. SOL-MELCORT [Suspect]
     Active Substance: METHYLPREDNISOLONE SODIUM SUCCINATE
     Indication: MYELOFIBROSIS
     Dosage: 500 MG, DAILY
  2. MICAFUNGIN [Suspect]
     Active Substance: MICAFUNGIN
     Indication: INFECTION
     Dosage: UNK
     Dates: start: 20131208
  3. ETOPOSIDE. [Suspect]
     Active Substance: ETOPOSIDE
     Indication: MYELOFIBROSIS
     Dosage: UNK
     Dates: start: 20131225
  4. AMPHOTERICIN B, LIPOSOME [Suspect]
     Active Substance: AMPHOTERICIN B
     Indication: CANDIDA INFECTION
     Dosage: UNK
     Dates: start: 20140107
  5. CYCLOSPORIN [Suspect]
     Active Substance: CYCLOSPORINE
     Indication: MYELOFIBROSIS
     Dosage: UNK
     Dates: start: 20131221
  6. PREDONINE [Suspect]
     Active Substance: PREDNISOLONE\PREDNISOLONE ACETATE\PREDNISOLONE SODIUM SUCCINATE
     Indication: MYELOFIBROSIS
     Dosage: 10 MG, UNK
     Dates: start: 20131216

REACTIONS (4)
  - Pyrexia [Not Recovered/Not Resolved]
  - Acute kidney injury [Fatal]
  - Nephritis [Not Recovered/Not Resolved]
  - Trichosporon infection [Fatal]

NARRATIVE: CASE EVENT DATE: 201401
